FAERS Safety Report 10014604 (Version 2)
Quarter: 2014Q2

REPORT INFORMATION
  Report Type: Spontaneous
  Country: US (occurrence: US)
  Receive Date: 20140317
  Receipt Date: 20140410
  Transmission Date: 20141212
  Serious: Yes (Hospitalization, Other)
  Sender: FDA-Public Use
  Company Number: US-FRI-1000060533

PATIENT
  Age: 26 Year
  Sex: Female
  Weight: 48 kg

DRUGS (10)
  1. VIIBRYD [Suspect]
     Indication: DEPRESSION
     Dosage: 10 MG
     Dates: start: 20140121, end: 20140127
  2. VIIBRYD [Suspect]
     Dosage: 20 MG
     Dates: start: 20140128, end: 20140203
  3. VIIBRYD [Suspect]
     Indication: DEPRESSION
     Dosage: 40 MG
     Dates: start: 20140204, end: 20140228
  4. VIIBRYD [Suspect]
     Dosage: 40 MG
     Route: 048
     Dates: start: 20140304
  5. IMITREX [Suspect]
     Indication: MIGRAINE
     Dosage: 50 MG AS NEEDED
     Dates: end: 20140228
  6. TESSALON PERLES [Concomitant]
     Dosage: 200 MG THREE TIMES A DAY AS NEEDED
  7. NORCO [Concomitant]
     Indication: PAIN
     Dosage: 10/325 MG 1-2 TABS EVERY 6 HOURS AS NEEDED
  8. MOBIC [Concomitant]
     Dosage: 15 MG
     Route: 048
  9. ONDANSETRON [Concomitant]
     Indication: NAUSEA
     Dosage: 8 MG AS NEEDED EVERY 6 HOURS
  10. TOPIRAMATE [Concomitant]
     Dosage: 100 MG

REACTIONS (4)
  - Respiratory failure [Recovered/Resolved]
  - Drug interaction [Recovered/Resolved]
  - Metabolic acidosis [Recovered/Resolved]
  - Serotonin syndrome [Recovered/Resolved]
